FAERS Safety Report 19615156 (Version 1)
Quarter: 2021Q3

REPORT INFORMATION
  Report Type: Report from Study
  Country: None (occurrence: US)
  Receive Date: 20210727
  Receipt Date: 20210727
  Transmission Date: 20211014
  Serious: Yes (Hospitalization)
  Sender: FDA-Public Use
  Company Number: US-ABBVIE-21K-163-3996556-00

PATIENT
  Sex: Female

DRUGS (1)
  1. HUMIRA [Suspect]
     Active Substance: ADALIMUMAB
     Indication: COLITIS ULCERATIVE
     Dosage: CITRATE FREE
     Route: 058
     Dates: start: 202104, end: 20210627

REACTIONS (6)
  - Haemorrhage [Unknown]
  - Pain [Unknown]
  - Tremor [Unknown]
  - Colitis ulcerative [Recovered/Resolved]
  - Headache [Unknown]
  - Dizziness [Unknown]
